FAERS Safety Report 17012186 (Version 1)
Quarter: 2019Q4

REPORT INFORMATION
  Report Type: Spontaneous
  Country: US (occurrence: US)
  Receive Date: 20191108
  Receipt Date: 20191108
  Transmission Date: 20200122
  Serious: Yes (Other)
  Sender: FDA-Public Use
  Company Number: US-OTSUKA-2019_035203

PATIENT
  Age: 58 Year
  Sex: Female

DRUGS (1)
  1. NUEDEXTA [Suspect]
     Active Substance: DEXTROMETHORPHAN HYDROBROMIDE\QUINIDINE SULFATE
     Indication: PRODUCT USED FOR UNKNOWN INDICATION
     Dosage: 1 DF, BID (EVERY 12 HOURS)
     Route: 065

REACTIONS (5)
  - Urinary tract infection [Unknown]
  - Agitation [Unknown]
  - Irritability [Unknown]
  - Crying [Unknown]
  - Labelled drug-drug interaction medication error [Unknown]
